FAERS Safety Report 19700419 (Version 1)
Quarter: 2021Q3

REPORT INFORMATION
  Report Type: Report from Study
  Country: DE (occurrence: DE)
  Receive Date: 20210813
  Receipt Date: 20210813
  Transmission Date: 20211014
  Serious: Yes (Other)
  Sender: FDA-Public Use
  Company Number: DE-BAYER-2021-190572

PATIENT
  Sex: Male

DRUGS (1)
  1. SORAFENIB [Suspect]
     Active Substance: SORAFENIB
     Indication: HEPATOCELLULAR CARCINOMA
     Dosage: UNK
     Dates: start: 201505, end: 201506

REACTIONS (5)
  - Vomiting [None]
  - Leukopenia [None]
  - Thrombocytopenia [None]
  - Anal abscess [None]
  - Diarrhoea [None]
